FAERS Safety Report 7200924-6 (Version None)
Quarter: 2010Q4

REPORT INFORMATION
  Report Type: 
  Country: None (occurrence: None)
  Receive Date: 20101228
  Receipt Date: 20101223
  Transmission Date: 20110411
  Serious: Yes (Death)
  Sender: FDA-Public Use
  Company Number: GB-ABBOTT-10P-167-0693453-00

PATIENT
  Age: 25 Year
  Sex: Male

DRUGS (16)
  1. RITONAVIR [Suspect]
     Indication: HIV INFECTION
  2. DARUNAVIR [Suspect]
     Indication: HIV INFECTION
  3. MOXIFLOXACIN [Suspect]
     Indication: TUBERCULOSIS
  4. ONDANSETRON [Suspect]
     Indication: PRODUCT USED FOR UNKNOWN INDICATION
  5. FLUCONAZOLE [Suspect]
     Indication: ORAL CANDIDIASIS
  6. AMIKACIN [Concomitant]
     Indication: ANTIBIOTIC PROPHYLAXIS
     Route: 042
  7. PROTHIONAMIDE [Concomitant]
     Indication: TUBERCULOSIS
  8. ETHAMBUTOL HYDROCHLORIDE [Concomitant]
     Indication: ANTIBIOTIC PROPHYLAXIS
  9. PYRAZINAMIDE [Concomitant]
     Indication: ANTIBIOTIC PROPHYLAXIS
  10. CYCLOSERINE [Concomitant]
     Indication: TUBERCULOSIS
  11. LINEZOLID [Concomitant]
     Indication: TUBERCULOSIS
  12. EFAVIRENZ [Concomitant]
     Indication: PRODUCT USED FOR UNKNOWN INDICATION
  13. TRUVADA [Concomitant]
     Indication: PRODUCT USED FOR UNKNOWN INDICATION
  14. CLOFAZAMINE [Concomitant]
     Indication: PRODUCT USED FOR UNKNOWN INDICATION
  15. VALGANCICLOVIR HCL [Concomitant]
     Indication: PRODUCT USED FOR UNKNOWN INDICATION
  16. LOW MOLECULAR WEIGHT HEPARIN [Concomitant]
     Indication: PRODUCT USED FOR UNKNOWN INDICATION

REACTIONS (1)
  - ARRHYTHMIA [None]
